FAERS Safety Report 7974799-1 (Version None)
Quarter: 2011Q4

REPORT INFORMATION
  Report Type: 
  Country: None (occurrence: None)
  Receive Date: 20111213
  Receipt Date: 20111205
  Transmission Date: 20120403
  Serious: Yes (Hospitalization, Other)
  Sender: FDA-Public Use
  Company Number: AT-AMGEN-AUTCT2011063968

PATIENT
  Age: 61 Year
  Sex: Female

DRUGS (3)
  1. BLINDED DENOSUMAB [Suspect]
     Indication: BREAST CANCER
     Dosage: UNK UNK, QMO
     Route: 058
     Dates: start: 20100226
  2. BLINDED DENOSUMAB [Suspect]
     Dosage: UNK UNK, QMO
     Route: 058
     Dates: start: 20100226
  3. BLINDED PLACEBO [Suspect]
     Indication: BREAST CANCER
     Dosage: UNK UNK, QMO
     Route: 058
     Dates: start: 20100226

REACTIONS (2)
  - ATRIAL FIBRILLATION [None]
  - ARRHYTHMIA [None]
